FAERS Safety Report 11789808 (Version 3)
Quarter: 2015Q4

REPORT INFORMATION
  Report Type: Report from Study
  Country: US (occurrence: US)
  Receive Date: 20151201
  Receipt Date: 20151230
  Transmission Date: 20160305
  Serious: Yes (Hospitalization)
  Sender: FDA-Public Use
  Company Number: US-ACTELION-A-NJ2015-127900

PATIENT
  Age: 39 Year
  Sex: Female

DRUGS (6)
  1. REMODULIN [Suspect]
     Active Substance: TREPROSTINIL
     Indication: PULMONARY HYPERTENSION
     Dosage: 140 NG/KG, PER MIN
     Route: 041
     Dates: start: 20120501, end: 20151119
  2. VELETRI [Suspect]
     Active Substance: EPOPROSTENOL
     Indication: PULMONARY ARTERIAL HYPERTENSION
     Dosage: 125 NG/KG, PER MIN
     Route: 042
     Dates: start: 20151117
  3. VELETRI [Suspect]
     Active Substance: EPOPROSTENOL
     Dosage: 100 NG/KG, PER MIN
     Route: 042
  4. VELETRI [Suspect]
     Active Substance: EPOPROSTENOL
     Dosage: 110 NG/KG, PER MIN
     Route: 042
  5. ADCIRCA [Concomitant]
     Active Substance: TADALAFIL
  6. TRACLEER [Suspect]
     Active Substance: BOSENTAN
     Indication: PULMONARY ARTERIAL HYPERTENSION
     Dosage: UNK
     Route: 048

REACTIONS (10)
  - Fatigue [Unknown]
  - Decreased appetite [Recovering/Resolving]
  - Sneezing [Recovering/Resolving]
  - Cough [Recovering/Resolving]
  - Flushing [Unknown]
  - Pain in jaw [Recovering/Resolving]
  - Nausea [Unknown]
  - Vomiting [Unknown]
  - Swelling face [Recovering/Resolving]
  - Cardiomegaly [Unknown]
